FAERS Safety Report 8599093-X (Version None)
Quarter: 2012Q3

REPORT INFORMATION
  Report Type: 
  Country: None (occurrence: None)
  Receive Date: 20120816
  Receipt Date: 19960515
  Transmission Date: 20120928
  Serious: Yes (Other)
  Sender: FDA-Public Use
  Company Number: US-ROCHE-1101300

PATIENT
  Sex: Male

DRUGS (7)
  1. MICRONASE [Concomitant]
  2. COUMADIN [Concomitant]
  3. LANOXIN [Concomitant]
  4. VASOTEC [Concomitant]
  5. ACTIVASE [Suspect]
     Indication: ACUTE MYOCARDIAL INFARCTION
  6. IMDUR [Concomitant]
  7. MICRO-K [Concomitant]

REACTIONS (5)
  - CARDIAC TAMPONADE [None]
  - TRANSIENT ISCHAEMIC ATTACK [None]
  - TACHYCARDIA [None]
  - PERICARDIAL EFFUSION [None]
  - MELAENA [None]
